FAERS Safety Report 10419044 (Version 1)
Quarter: 2014Q2

REPORT INFORMATION
  Report Type: Spontaneous
  Country: US (occurrence: None)
  Receive Date: 20140617
  Receipt Date: 20140617
  Transmission Date: 20141212
  Serious: Yes (Hospitalization)
  Sender: FDA-Public Use
  Company Number: USW201402-000028

PATIENT
  Age: 91 Year
  Sex: Female

DRUGS (1)
  1. APOKYN [Suspect]
     Dates: start: 20140120

REACTIONS (1)
  - Syncope [None]
